FAERS Safety Report 19230237 (Version 2)
Quarter: 2021Q3

REPORT INFORMATION
  Report Type: Spontaneous
  Country: US (occurrence: US)
  Receive Date: 20210506
  Receipt Date: 20210922
  Transmission Date: 20211014
  Serious: No
  Sender: FDA-Public Use
  Company Number: US-SA-2021SA147891

PATIENT
  Age: 54 Year
  Sex: Female

DRUGS (3)
  1. DUPIXENT [Suspect]
     Active Substance: DUPILUMAB
     Indication: DERMATITIS ATOPIC
     Dosage: 600 MG, 1X
     Route: 058
     Dates: start: 202102, end: 202102
  2. PREDNISONE. [Suspect]
     Active Substance: PREDNISONE
  3. DUPIXENT [Suspect]
     Active Substance: DUPILUMAB
     Dosage: 300 MG, QOW
     Route: 058
     Dates: start: 202102

REACTIONS (3)
  - SARS-CoV-2 test positive [Unknown]
  - Blood glucose decreased [Unknown]
  - COVID-19 [Unknown]

NARRATIVE: CASE EVENT DATE: 2021
